FAERS Safety Report 25886286 (Version 1)
Quarter: 2025Q4

REPORT INFORMATION
  Report Type: Spontaneous
  Country: EU (occurrence: EU)
  Receive Date: 20251006
  Receipt Date: 20251006
  Transmission Date: 20260117
  Serious: Yes (Other)
  Sender: Kenvue
  Company Number: EU-UCBSA-2025061285

PATIENT

DRUGS (1)
  1. CETIRIZINE HYDROCHLORIDE [Suspect]
     Active Substance: CETIRIZINE HYDROCHLORIDE
     Indication: Rhinitis allergic
     Dosage: 2 HEAPED TABLESPOONS (10 MILLIGRAM) PER DAY, (ORAL SOLUTION)
     Route: 048
     Dates: end: 202509

REACTIONS (5)
  - Intestinal haemorrhage [Recovering/Resolving]
  - Gastrointestinal disorder [Recovering/Resolving]
  - Adverse drug reaction [Recovering/Resolving]
  - Therapy interrupted [Unknown]
  - Product availability issue [Unknown]

NARRATIVE: CASE EVENT DATE: 20250101
